FAERS Safety Report 14880937 (Version 1)
Quarter: 2018Q2

REPORT INFORMATION
  Report Type: Spontaneous
  Country: IN (occurrence: IN)
  Receive Date: 20180511
  Receipt Date: 20180511
  Transmission Date: 20180711
  Serious: Yes (Death, Life-Threatening, Hospitalization, Other)
  Sender: FDA-Public Use
  Company Number: IN-SHIRE-IN201817326

PATIENT

DRUGS (4)
  1. PROPEN [Suspect]
     Active Substance: PENICILLIN G PROCAINE
     Indication: PRODUCT USED FOR UNKNOWN INDICATION
     Route: 065
  2. FLEXBUMIN [Suspect]
     Active Substance: ALBUMIN HUMAN
     Indication: BLOOD ALBUMIN DECREASED
     Dosage: 160FROPS/60 SECONDS
     Route: 065
  3. LEVIPIL [Suspect]
     Active Substance: LEVETIRACETAM
     Indication: PRODUCT USED FOR UNKNOWN INDICATION
     Route: 065
  4. PIPERACILLIN AND TAZOBACTAM [Suspect]
     Active Substance: PIPERACILLIN SODIUM\TAZOBACTAM SODIUM
     Indication: PRODUCT USED FOR UNKNOWN INDICATION
     Route: 042

REACTIONS (8)
  - Nervous system disorder [Fatal]
  - Exposure during pregnancy [Fatal]
  - Hypotension [Fatal]
  - Arrhythmia [Fatal]
  - Seizure [None]
  - Maternal exposure during pregnancy [None]
  - Tachycardia [Fatal]
  - Caesarean section [None]
